FAERS Safety Report 9240734 (Version 1)
Quarter: 2013Q2

REPORT INFORMATION
  Report Type: Spontaneous
  Country: US (occurrence: US)
  Receive Date: 20130418
  Receipt Date: 20130418
  Transmission Date: 20140414
  Serious: No
  Sender: FDA-Public Use
  Company Number: US-SANOFI-AVENTIS-2012SA092692

PATIENT
  Age: 54 Year
  Sex: Female

DRUGS (3)
  1. LOVENOX [Suspect]
     Indication: BLOOD DISORDER
     Route: 065
     Dates: start: 201212, end: 20121208
  2. LOVENOX [Suspect]
     Indication: BLOOD DISORDER
     Route: 065
     Dates: start: 20121209, end: 20121210
  3. COUMADIN [Concomitant]

REACTIONS (4)
  - Prothrombin time ratio decreased [Unknown]
  - International normalised ratio decreased [Unknown]
  - Injection site pain [Recovered/Resolved]
  - Drug ineffective [Unknown]
